FAERS Safety Report 18986562 (Version 2)
Quarter: 2021Q1

REPORT INFORMATION
  Report Type: Spontaneous
  Country: US (occurrence: US)
  Receive Date: 20210309
  Receipt Date: 20210330
  Transmission Date: 20210420
  Serious: Yes (Other)
  Sender: FDA-Public Use
  Company Number: US-ASTRAZENECA-2021A106844

PATIENT
  Sex: Male
  Weight: 77.1 kg

DRUGS (1)
  1. FASENRA [Suspect]
     Active Substance: BENRALIZUMAB
     Dosage: 30MG/ML EVERY EIGHT WEEKS
     Route: 058
     Dates: start: 202012

REACTIONS (6)
  - Fall [Unknown]
  - Pyrexia [Unknown]
  - Hypotension [Unknown]
  - Product dose omission issue [Unknown]
  - Rash macular [Recovering/Resolving]
  - Loss of consciousness [Unknown]

NARRATIVE: CASE EVENT DATE: 20201217
